FAERS Safety Report 18701380 (Version 2)
Quarter: 2021Q1

REPORT INFORMATION
  Report Type: Spontaneous
  Country: JP (occurrence: JP)
  Receive Date: 20210105
  Receipt Date: 20210108
  Transmission Date: 20210419
  Serious: Yes (Death, Hospitalization, Other)
  Sender: FDA-Public Use
  Company Number: JP-COLLEGIUM PHARMACEUTICAL, INC.-2020CGM01156

PATIENT
  Age: 71 Year
  Sex: Male

DRUGS (2)
  1. NUCYNTA ER [Suspect]
     Active Substance: TAPENTADOL HYDROCHLORIDE
     Indication: CANCER PAIN
     Dosage: 100 MG, 3X/DAY
     Route: 048
  2. NUCYNTA ER [Suspect]
     Active Substance: TAPENTADOL HYDROCHLORIDE
     Dosage: 25 MG, 4X/DAY

REACTIONS (4)
  - Off label use [Unknown]
  - Malignant neoplasm progression [Fatal]
  - Inappropriate schedule of product administration [Unknown]
  - Adverse event [Unknown]
